FAERS Safety Report 23826067 (Version 2)
Quarter: 2024Q3

REPORT INFORMATION
  Report Type: Report from Study
  Country: US (occurrence: US)
  Receive Date: 20240507
  Receipt Date: 20240802
  Transmission Date: 20241016
  Serious: Yes (Other)
  Sender: IPSEN
  Company Number: US-IPSEN Group, Research and Development-2024-06676

PATIENT
  Age: 51 Year
  Sex: Female

DRUGS (1)
  1. SOMATULINE DEPOT [Suspect]
     Active Substance: LANREOTIDE ACETATE
     Indication: Pancreatic carcinoma
     Dosage: DEEP SUBCUTANEOUS INJECTION
     Route: 058

REACTIONS (11)
  - Pain [Recovered/Resolved]
  - Hepatomegaly [Recovered/Resolved]
  - Diarrhoea [Recovered/Resolved]
  - Cystitis [Unknown]
  - Blood gastrin increased [Unknown]
  - Injection site pain [Recovered/Resolved]
  - Injection site mass [Recovered/Resolved]
  - Fatigue [Recovered/Resolved]
  - Injection site haemorrhage [Unknown]
  - Product use complaint [Unknown]
  - Proteinuria [Unknown]

NARRATIVE: CASE EVENT DATE: 20240411
